FAERS Safety Report 5720521-9 (Version None)
Quarter: 2008Q2

REPORT INFORMATION
  Report Type: 
  Country: None (occurrence: None)
  Receive Date: 20080423
  Receipt Date: 20080117
  Transmission Date: 20081010
  Serious: Yes (Other)
  Sender: FDA-Public Use
  Company Number: WAES 0801USA03798

PATIENT
  Age: 4 Year
  Sex: Female

DRUGS (5)
  1. SINGULAIR [Suspect]
     Indication: EAR INFECTION
     Dosage: PO
     Route: 048
     Dates: start: 20080116, end: 20080116
  2. PULMICORT-100 [Concomitant]
  3. ROBITUSSIN-DM [Concomitant]
  4. XOPENEX [Concomitant]
  5. ZITHROMAX [Concomitant]

REACTIONS (2)
  - CONVULSION [None]
  - FOAMING AT MOUTH [None]
